FAERS Safety Report 11599499 (Version 1)
Quarter: 2015Q3

REPORT INFORMATION
  Report Type: Spontaneous
  Country: US (occurrence: US)
  Receive Date: 20150916
  Receipt Date: 20150916
  Transmission Date: 20151125
  Serious: No
  Sender: FDA-Public Use
  Company Number: US-ELI_LILLY_AND_COMPANY-US200711002693

PATIENT
  Age: 38 Year
  Sex: Female
  Weight: 48.53 kg

DRUGS (18)
  1. COLACE [Concomitant]
     Active Substance: DOCUSATE SODIUM
  2. FORTEO [Suspect]
     Active Substance: TERIPARATIDE
     Dosage: 20 UG, UNK
     Dates: start: 2005
  3. PLAQUENIL [Concomitant]
     Active Substance: HYDROXYCHLOROQUINE SULFATE
  4. PHENERGAN [Concomitant]
     Active Substance: PROMETHAZINE HYDROCHLORIDE
  5. PROTONIX [Concomitant]
     Active Substance: PANTOPRAZOLE SODIUM
  6. LOVENOX [Concomitant]
     Active Substance: ENOXAPARIN SODIUM
  7. PREDNISONE. [Concomitant]
     Active Substance: PREDNISONE
  8. NEURONTIN [Concomitant]
     Active Substance: GABAPENTIN
  9. FLORINEF ACETATE [Concomitant]
     Active Substance: FLUDROCORTISONE ACETATE
  10. LANTUS [Concomitant]
     Active Substance: INSULIN GLARGINE
  11. MTX [Concomitant]
     Active Substance: METHOTREXATE SODIUM
  12. MULTIVITAMIN [Concomitant]
     Active Substance: VITAMINS
  13. NEXIUM [Concomitant]
     Active Substance: ESOMEPRAZOLE MAGNESIUM
  14. FOLATE [Concomitant]
     Active Substance: FOLATE SODIUM
  15. CYCLOBENZAPRINE [Concomitant]
     Active Substance: CYCLOBENZAPRINE
  16. CALCIUM W/VITAMIN D NOS [Concomitant]
     Active Substance: CALCIUM\VITAMIN D
  17. OXYCODONE [Concomitant]
     Active Substance: OXYCODONE
  18. ANZEMET [Concomitant]
     Active Substance: DOLASETRON MESYLATE

REACTIONS (2)
  - Fracture [Unknown]
  - Wrist fracture [Recovering/Resolving]
